FAERS Safety Report 4451888-X (Version None)
Quarter: 2004Q3

REPORT INFORMATION
  Report Type: 
  Country: None (occurrence: None)
  Receive Date: 20040916
  Receipt Date: 20040903
  Transmission Date: 20050211
  Serious: Yes (Life-Threatening, Hospitalization, Other)
  Sender: FDA-Public Use
  Company Number: 2004S1002646

PATIENT
  Age: 55 Year
  Sex: Female
  Weight: 111.1313 kg

DRUGS (4)
  1. ESTRADIOL [Suspect]
     Indication: OESTROGEN REPLACEMENT THERAPY
     Dosage: 2 MG QD, ORAL
     Route: 048
     Dates: start: 20030101, end: 20040829
  2. WARFARIN SODIUM [Concomitant]
  3. DILTIAZEM [Concomitant]
  4. GLYBURIDE [Concomitant]

REACTIONS (4)
  - CEREBROVASCULAR ACCIDENT [None]
  - INTRACARDIAC THROMBUS [None]
  - THROMBOSIS [None]
  - TRANSIENT ISCHAEMIC ATTACK [None]
